FAERS Safety Report 9651987 (Version 1)
Quarter: 2013Q4

REPORT INFORMATION
  Report Type: Spontaneous
  Country: FR (occurrence: None)
  Receive Date: 20131025
  Receipt Date: 20131025
  Transmission Date: 20140711
  Serious: Yes (Life-Threatening)
  Sender: FDA-Public Use
  Company Number: SYM-2013-12068

PATIENT
  Age: 86 Year
  Sex: Female

DRUGS (11)
  1. FLAGYL [Suspect]
     Indication: PRODUCT USED FOR UNKNOWN INDICATION
     Route: 042
     Dates: start: 20130517, end: 20130517
  2. CEFOTAXIME [Suspect]
     Indication: PRODUCT USED FOR UNKNOWN INDICATION
     Route: 042
     Dates: start: 20130517, end: 20130517
  3. SPIRIVA (TIOTROPIUM BROMIDE) (TIOTRPIUM BROMIDE) [Concomitant]
  4. QVAR (BECLOMETASONE DIPROPIONATE) (BECLOMETASONE DIPROPIONATE) [Concomitant]
  5. COOLMETEC (BENICAR HCT) (HYDROCHLOROTHIAZIDE, OLMESARTAN MEDOXOMIL) [Concomitant]
  6. LYRICA (PREGAMBLIN) (PREGAMBLIN) [Concomitant]
  7. ISOPTINE (VERAPAMIL HYDROCHLORIDE) (VERAPAMIL HYDRCHLORIDE) [Concomitant]
  8. INEXIUM (ESOMEPRAZOLE MAGNESIUM) (ESOMEPRAZOLE MAGNESIUM) [Concomitant]
  9. TAHOR (ATORVASTATIN CALCIUM) (ATORVASTATIN CALCIUM) [Concomitant]
  10. KARDEGIC (ACETYLSALICYLATE LYSINE) (ACETYLSALICYLATE LYSINE) [Concomitant]
  11. NEOMERCAZOLE (CARBIMAZOLE) (CARBIMAZOLE) [Concomitant]

REACTIONS (8)
  - Anaphylactic shock [None]
  - Blood pressure systolic decreased [None]
  - Tachycardia [None]
  - Respiratory distress [None]
  - Erythema [None]
  - Erythema [None]
  - Loss of consciousness [None]
  - Palatal oedema [None]
